FAERS Safety Report 15711609 (Version 3)
Quarter: 2019Q2

REPORT INFORMATION
  Report Type: Report from Study
  Country: None (occurrence: US)
  Receive Date: 20181212
  Receipt Date: 20190410
  Transmission Date: 20190711
  Serious: Yes (Hospitalization)
  Sender: FDA-Public Use
  Company Number: US-ABBVIE-18K-163-2517245-00

PATIENT
  Age: 53 Year
  Sex: Female

DRUGS (2)
  1. HUMIRA [Suspect]
     Active Substance: ADALIMUMAB
     Indication: RHEUMATOID ARTHRITIS
     Route: 058
     Dates: start: 201806, end: 201904
  2. CORTISONE [Suspect]
     Active Substance: CORTISONE\HYDROCORTISONE
     Indication: PRODUCT USED FOR UNKNOWN INDICATION
     Route: 058

REACTIONS (19)
  - Swelling [Not Recovered/Not Resolved]
  - Pain in extremity [Recovering/Resolving]
  - Arthralgia [Recovering/Resolving]
  - Musculoskeletal pain [Unknown]
  - Blood glucose abnormal [Recovering/Resolving]
  - Urine ketone body present [Unknown]
  - Rhinorrhoea [Unknown]
  - Peripheral swelling [Recovering/Resolving]
  - Drug ineffective [Recovering/Resolving]
  - Thirst [Unknown]
  - Fatigue [Recovered/Resolved]
  - Pain [Unknown]
  - Vomiting [Unknown]
  - Hypophagia [Recovered/Resolved]
  - Sensitivity to weather change [Unknown]
  - Joint swelling [Recovering/Resolving]
  - Pain in extremity [Unknown]
  - Weight decreased [Unknown]
  - Joint stiffness [Recovering/Resolving]

NARRATIVE: CASE EVENT DATE: 2018
